FAERS Safety Report 25615681 (Version 1)
Quarter: 2025Q3

REPORT INFORMATION
  Report Type: Spontaneous
  Country: US (occurrence: US)
  Receive Date: 20250729
  Receipt Date: 20250729
  Transmission Date: 20251021
  Serious: Yes (Life-Threatening, Hospitalization)
  Sender: ACCORD
  Company Number: US-MLMSERVICE-20250715-PI573247-00195-3

PATIENT
  Age: 25 Year
  Sex: Female

DRUGS (3)
  1. LETROZOLE [Suspect]
     Active Substance: LETROZOLE
     Indication: Controlled ovarian stimulation
  2. LEUPROLIDE [Suspect]
     Active Substance: LEUPROLIDE
     Indication: Controlled ovarian stimulation
  3. MENOTROPINS [Suspect]
     Active Substance: MENOTROPINS
     Indication: Controlled ovarian stimulation

REACTIONS (10)
  - Ovarian hyperstimulation syndrome [Recovering/Resolving]
  - Pulmonary oedema [Recovering/Resolving]
  - Pleural effusion [Recovering/Resolving]
  - Acute kidney injury [Recovering/Resolving]
  - Lactic acidosis [Recovering/Resolving]
  - Shock [Recovering/Resolving]
  - Acute hepatic failure [Recovering/Resolving]
  - Respiratory failure [Recovering/Resolving]
  - Condition aggravated [Recovering/Resolving]
  - Off label use [Unknown]
